FAERS Safety Report 4647711-0 (Version None)
Quarter: 2005Q2

REPORT INFORMATION
  Report Type: 
  Country: None (occurrence: None)
  Receive Date: 20050428
  Receipt Date: 20050419
  Transmission Date: 20051028
  Serious: Yes (Hospitalization)
  Sender: FDA-Public Use
  Company Number: FR-BRISTOL-MYERS SQUIBB COMPANY-12938072

PATIENT
  Sex: Male

DRUGS (7)
  1. BLEOMYCIN SULFATE [Suspect]
     Indication: KAPOSI'S SARCOMA
     Route: 042
     Dates: start: 20041223, end: 20041223
  2. ONCOVIN [Suspect]
     Indication: KAPOSI'S SARCOMA
     Route: 042
     Dates: start: 20041223, end: 20041223
  3. ADRIBLASTINE [Concomitant]
     Indication: KAPOSI'S SARCOMA
     Route: 042
     Dates: start: 20041223, end: 20041223
  4. KALETRA [Concomitant]
     Route: 048
  5. ZIAGEN [Concomitant]
     Route: 048
  6. EMTRICITABINE [Concomitant]
  7. FUZEON [Concomitant]
     Route: 048

REACTIONS (2)
  - BONE PAIN [None]
  - MYALGIA [None]
